FAERS Safety Report 18776724 (Version 3)
Quarter: 2021Q1

REPORT INFORMATION
  Report Type: Other
  Country: DE (occurrence: DE)
  Receive Date: 20210122
  Receipt Date: 20210226
  Transmission Date: 20210419
  Serious: Yes (Death)
  Sender: FDA-Public Use
  Company Number: DE-ROCHE-2752730

PATIENT
  Age: 65 Year
  Sex: Male
  Weight: 99 kg

DRUGS (9)
  1. VALORON (GERMANY) [Concomitant]
     Active Substance: TILIDINE HYDROCHLORIDE
     Route: 048
     Dates: start: 20201217
  2. PANTOPRAZOLE [Concomitant]
     Active Substance: PANTOPRAZOLE
     Route: 048
     Dates: start: 20201217
  3. ETOPOSIDE. [Suspect]
     Active Substance: ETOPOSIDE
     Indication: SMALL CELL LUNG CANCER
     Dosage: ON 08/JAN/2021. HE RECEIVED LAST DOSE TAKEN PRIOR TO EVENT.
     Route: 042
     Dates: start: 20210106
  4. CARBOPLATIN. [Suspect]
     Active Substance: CARBOPLATIN
     Indication: SMALL CELL LUNG CANCER
     Dosage: ON 06/JAN/2021. HE RECEIVED LAST DOSE TAKEN PRIOR TO EVENT AT 400MG/MIN*ML
     Route: 042
     Dates: start: 20210106
  5. CARVEDILOL. [Concomitant]
     Active Substance: CARVEDILOL
     Indication: HYPERTENSION
     Route: 048
  6. RAMILICH COMP [Concomitant]
     Active Substance: HYDROCHLOROTHIAZIDE\RAMIPRIL
     Route: 048
  7. ATEZOLIZUMAB. [Suspect]
     Active Substance: ATEZOLIZUMAB
     Indication: SMALL CELL LUNG CANCER
     Dosage: ON 07/JAN/2021, HE RECEIVED MOST RECENT DOSE PRIOR TO AE
     Route: 042
     Dates: start: 20210107
  8. RAMILICH COMP [Concomitant]
     Active Substance: HYDROCHLOROTHIAZIDE\RAMIPRIL
     Indication: HYPERTENSION
     Route: 048
  9. NOVAMINSULFON [Concomitant]
     Active Substance: METAMIZOLE
     Route: 048
     Dates: start: 20201217

REACTIONS (1)
  - COVID-19 [Fatal]

NARRATIVE: CASE EVENT DATE: 20210113
